FAERS Safety Report 5232402-8 (Version None)
Quarter: 2007Q1

REPORT INFORMATION
  Report Type: 
  Country: None (occurrence: None)
  Receive Date: 20070205
  Receipt Date: 20070123
  Transmission Date: 20070707
  Serious: Yes (Hospitalization)
  Sender: FDA-Public Use
  Company Number: 2006-03312

PATIENT
  Age: 36 Year
  Sex: Male
  Weight: 90 kg

DRUGS (3)
  1. VELCADE [Suspect]
     Indication: MULTIPLE MYELOMA
     Dosage: 2.60 MG, INTRAVENOUS
     Route: 042
     Dates: start: 20061003, end: 20061215
  2. DEXAMETHASONE [Concomitant]
  3. VALACYCLOVIR HCL [Concomitant]

REACTIONS (4)
  - HAEMOLYTIC ANAEMIA [None]
  - PYREXIA [None]
  - THROMBOCYTOPENIA [None]
  - TOOTH SOCKET HAEMORRHAGE [None]
